FAERS Safety Report 19463829 (Version 1)
Quarter: 2021Q2

REPORT INFORMATION
  Report Type: Spontaneous
  Country: US (occurrence: US)
  Receive Date: 20210625
  Receipt Date: 20210625
  Transmission Date: 20210717
  Serious: No
  Sender: FDA-Public Use
  Company Number: US-SA-2019SA107708

PATIENT
  Age: 56 Year
  Sex: Male

DRUGS (1)
  1. CAPRELSA [Suspect]
     Active Substance: VANDETANIB
     Indication: THYROID CANCER
     Dosage: 200 MG, QD
     Route: 048
     Dates: start: 20190119

REACTIONS (17)
  - Abdominal discomfort [Unknown]
  - Muscle strain [Unknown]
  - Dyspepsia [Unknown]
  - Prostatomegaly [Unknown]
  - Diarrhoea [Unknown]
  - Hypertension [Unknown]
  - Tooth extraction [Unknown]
  - Toothache [Unknown]
  - Rhinorrhoea [Unknown]
  - Infection [Unknown]
  - Respiratory tract infection viral [Unknown]
  - Dyspnoea [Unknown]
  - Blood calcium increased [Unknown]
  - Pyrexia [Unknown]
  - Anxiety [Unknown]
  - Lacrimation increased [Unknown]
  - Nausea [Unknown]
